FAERS Safety Report 5069552-5 (Version None)
Quarter: 2006Q3

REPORT INFORMATION
  Report Type: 
  Country: None (occurrence: None)
  Receive Date: 20060803
  Receipt Date: 20060724
  Transmission Date: 20061208
  Serious: Yes (Hospitalization)
  Sender: FDA-Public Use
  Company Number: PHBS2006BE10989

PATIENT
  Age: 74 Year
  Sex: Female

DRUGS (7)
  1. LAMISIL [Suspect]
     Route: 048
  2. MEDROL [Concomitant]
     Dosage: 4 MG/D
  3. FOSAMAX [Concomitant]
  4. D-VITAL CALCIUM [Concomitant]
  5. BEFACT FORTE [Concomitant]
  6. RIVOTRIL [Concomitant]
  7. EMCONCOR [Concomitant]

REACTIONS (2)
  - FATIGUE [None]
  - PAIN IN EXTREMITY [None]
